FAERS Safety Report 21968700 (Version 1)
Quarter: 2023Q1

REPORT INFORMATION
  Report Type: Spontaneous
  Country: CA (occurrence: CA)
  Receive Date: 20230208
  Receipt Date: 20230208
  Transmission Date: 20230417
  Serious: Yes (Other)
  Sender: FDA-Public Use
  Company Number: CA-PFIZER INC-202300051626

PATIENT
  Age: 61 Year
  Sex: Female
  Weight: 58 kg

DRUGS (13)
  1. SULFASALAZINE [Suspect]
     Active Substance: SULFASALAZINE
     Indication: Colitis ulcerative
     Dosage: 4 G, 1X/DAY (ONCE DAILY)
     Route: 048
  2. SULFASALAZINE [Suspect]
     Active Substance: SULFASALAZINE
     Indication: Inflammatory bowel disease
     Dosage: 500 MG, DAILY (UP TO 8 TABS DAILY P.O, ENTERIC COATED)
     Route: 048
  3. SULFASALAZINE [Suspect]
     Active Substance: SULFASALAZINE
     Dosage: 1 DF, 1X/DAY (3 TO 4 GM ONCE DAILY)
     Route: 048
  4. CELEBREX [Concomitant]
     Active Substance: CELECOXIB
     Indication: Arthritis
     Dosage: 100 MG, AS NEEDED (BID, AS NEEDED)
     Route: 048
  5. CORTIFOAM [Concomitant]
     Active Substance: HYDROCORTISONE ACETATE
     Indication: Colitis
     Dosage: UNK
  6. PANTOPRAZOLE [Concomitant]
     Active Substance: PANTOPRAZOLE
     Dosage: 40 MG, 1X/DAY
  7. PREDNISONE [Concomitant]
     Active Substance: PREDNISONE
     Dosage: 30 MG, 1X/DAY
  8. PREDNISONE [Concomitant]
     Active Substance: PREDNISONE
     Dosage: 5 MG
  9. PREDNISONE [Concomitant]
     Active Substance: PREDNISONE
     Dosage: 20 MG
  10. PREDNISONE [Concomitant]
     Active Substance: PREDNISONE
     Dosage: 2.5 MG, WEEKLY (WEAN HER PREDNISONE)
  11. MESALAMINE [Concomitant]
     Active Substance: MESALAMINE
     Indication: Colitis
     Dosage: UNK
  12. VEDOLIZUMAB [Concomitant]
     Active Substance: VEDOLIZUMAB
     Indication: Colitis ulcerative
     Dosage: 108 MG, EVERY 2 WEEK
     Route: 058
     Dates: start: 2020
  13. VEDOLIZUMAB [Concomitant]
     Active Substance: VEDOLIZUMAB
     Indication: Colitis ulcerative
     Dosage: UNK
     Route: 042

REACTIONS (13)
  - Anaemia [Unknown]
  - Drug ineffective [Unknown]
  - Weight decreased [Unknown]
  - Condition aggravated [Unknown]
  - Frequent bowel movements [Unknown]
  - C-reactive protein increased [Unknown]
  - Scaphoid abdomen [Unknown]
  - Arthropathy [Unknown]
  - Rectal tenesmus [Unknown]
  - Dyspnoea [Unknown]
  - Mucosal disorder [Unknown]
  - Inflammation [Unknown]
  - Arthritis [Unknown]
